FAERS Safety Report 9275587 (Version 2)
Quarter: 2015Q1

REPORT INFORMATION
  Report Type: Spontaneous
  Country: US (occurrence: US)
  Receive Date: 20130507
  Receipt Date: 20150105
  Transmission Date: 20150721
  Serious: Yes (Other)
  Sender: FDA-Public Use
  Company Number: PHHY2013US043735

PATIENT
  Age: 61 Year
  Sex: Female

DRUGS (2)
  1. BEVACIZUMAB [Concomitant]
     Active Substance: BEVACIZUMAB
     Indication: BREAST CANCER METASTATIC
     Route: 062
  2. PACLITAXEL. [Suspect]
     Active Substance: PACLITAXEL
     Indication: BREAST CANCER METASTATIC
     Route: 062

REACTIONS (5)
  - Vision blurred [Recovering/Resolving]
  - Retinal cyst [Recovering/Resolving]
  - Maculopathy [Recovering/Resolving]
  - Cystoid macular oedema [Recovering/Resolving]
  - Dry eye [Recovering/Resolving]
